FAERS Safety Report 26184250 (Version 2)
Quarter: 2025Q4

REPORT INFORMATION
  Report Type: Spontaneous
  Country: EU (occurrence: EU)
  Receive Date: 20251222
  Receipt Date: 20251226
  Transmission Date: 20260118
  Serious: Yes (Other)
  Sender: AMGEN
  Company Number: EU-AMGEN-CYPSP2025247363

PATIENT
  Sex: Male

DRUGS (2)
  1. ADALIMUMAB [Suspect]
     Active Substance: ADALIMUMAB
     Indication: Rheumatic disorder
     Dosage: STRENGTH 40 MILLIGRAM
     Route: 065
  2. ADALIMUMAB [Suspect]
     Active Substance: ADALIMUMAB
     Indication: Iritis

REACTIONS (6)
  - Rheumatic disorder [Not Recovered/Not Resolved]
  - Therapy non-responder [Unknown]
  - Pain [Unknown]
  - Iritis [Not Recovered/Not Resolved]
  - Injection site pain [Unknown]
  - Eye disorder [Not Recovered/Not Resolved]
